FAERS Safety Report 7363907-1 (Version None)
Quarter: 2011Q1

REPORT INFORMATION
  Report Type: 
  Country: None (occurrence: None)
  Receive Date: 20110321
  Receipt Date: 20110112
  Transmission Date: 20110831
  Serious: No
  Sender: FDA-Public Use
  Company Number: US-BAYER-2011-004443

PATIENT
  Sex: Male
  Weight: 97.052 kg

DRUGS (13)
  1. GLUMETZA [Concomitant]
  2. FISH OIL [Concomitant]
  3. UNCODEABLE ^UNCLASSIFIABLE^ [Concomitant]
  4. JANUVIA [Concomitant]
  5. LISINOPRIL [Concomitant]
  6. ONE-A-DAY [MINERALS NOS,VITAMINS NOS] [Concomitant]
  7. VITAMIN B [Concomitant]
  8. ALEVE (CAPLET) [Suspect]
     Indication: BACK PAIN
     Dosage: 2 DF, BID
     Route: 048
     Dates: start: 20110111
  9. HYDROCHLOROTHIAZIDE [Concomitant]
  10. GLIMEPIRIDE [Concomitant]
  11. ASPIRIN [Concomitant]
  12. SIMVASTATIN [Concomitant]
  13. ASCORBIC ACID [Concomitant]

REACTIONS (1)
  - NO ADVERSE EVENT [None]
